FAERS Safety Report 18810797 (Version 1)
Quarter: 2021Q1

REPORT INFORMATION
  Report Type: Spontaneous
  Country: CN (occurrence: CN)
  Receive Date: 20210130
  Receipt Date: 20210130
  Transmission Date: 20210419
  Serious: Yes (Other)
  Sender: FDA-Public Use
  Company Number: CN-LUPIN PHARMACEUTICALS INC.-2021-00824

PATIENT
  Age: 36 Year
  Sex: Female

DRUGS (9)
  1. THYMALFASIN [Suspect]
     Active Substance: THYMALFASIN
     Dosage: 1.6 MILLIGRAM, BIW
     Route: 065
     Dates: start: 20200417, end: 20200517
  2. INTERFERON ALFA 2B [Suspect]
     Active Substance: INTERFERON ALFA-2B
     Indication: COVID-19
     Dosage: 500000 UNIT, BIW
     Dates: start: 20200130, end: 20200301
  3. HYDROXYCHLOROQUINE [Suspect]
     Active Substance: HYDROXYCHLOROQUINE
     Dosage: 400 MILLIGRAM, TWICE A WEEK, ON THE FIRST DAY
     Route: 065
     Dates: start: 20200418
  4. THYMALFASIN [Suspect]
     Active Substance: THYMALFASIN
     Indication: COVID-19
     Dosage: 1.6 MILLIGRAM, BIW
     Route: 065
     Dates: start: 20200307, end: 20200309
  5. HYDROXYCHLOROQUINE [Suspect]
     Active Substance: HYDROXYCHLOROQUINE
     Indication: COVID-19
     Dosage: 400 MILLIGRAM, TWICE A WEEK, ON THE FIRST DAY
     Route: 065
     Dates: start: 20200220
  6. HYDROXYCHLOROQUINE [Suspect]
     Active Substance: HYDROXYCHLOROQUINE
     Dosage: 200 MILLIGRAM, TWICE A WEEK, ON THE FOLLOWING DAY
     Route: 065
     Dates: end: 20200427
  7. LOPINAVIR/RITONAVIR [Suspect]
     Active Substance: LOPINAVIR\RITONAVIR
     Indication: COVID-19
     Dosage: 2 DOSAGE FORM, TWICE A WEEK
     Route: 065
     Dates: start: 20200130, end: 20200220
  8. INTERFERON ALFA 2B [Suspect]
     Active Substance: INTERFERON ALFA-2B
     Dosage: 500000 UNIT, BIW
     Dates: start: 10100321, end: 20200702
  9. HYDROXYCHLOROQUINE [Suspect]
     Active Substance: HYDROXYCHLOROQUINE
     Dosage: 200 MILLIGRAM, TWICE A WEEK, ON THE FOLLOWING DAY
     Route: 065
     Dates: end: 20200225

REACTIONS (1)
  - Off label use [Unknown]

NARRATIVE: CASE EVENT DATE: 20200130
